FAERS Safety Report 6603110-3 (Version None)
Quarter: 2010Q1

REPORT INFORMATION
  Report Type: 
  Country: None (occurrence: None)
  Receive Date: 20100226
  Receipt Date: 20100224
  Transmission Date: 20100710
  Serious: Yes (Death, Other)
  Sender: FDA-Public Use
  Company Number: PHHY2010US00853

PATIENT
  Sex: Female

DRUGS (5)
  1. ZOMETA [Suspect]
     Indication: METASTASES TO BONE
     Dosage: UNK
  2. ZOMETA [Suspect]
     Indication: BREAST CANCER
  3. FEMARA [Concomitant]
     Indication: BREAST CANCER
  4. ATARAX [Concomitant]
  5. ZOCOR [Concomitant]

REACTIONS (3)
  - EYE MOVEMENT DISORDER [None]
  - MALIGNANT NEOPLASM PROGRESSION [None]
  - METASTASES TO MENINGES [None]
